FAERS Safety Report 17991140 (Version 1)
Quarter: 2020Q3

REPORT INFORMATION
  Report Type: Spontaneous
  Country: CN (occurrence: CN)
  Receive Date: 20200707
  Receipt Date: 20200707
  Transmission Date: 20201103
  Serious: Yes (Hospitalization, Other)
  Sender: FDA-Public Use
  Company Number: CN-ASTRAZENECA-2020SE84570

PATIENT
  Age: 23687 Day
  Sex: Female
  Weight: 61 kg

DRUGS (2)
  1. ASPIRIN. [Suspect]
     Active Substance: ASPIRIN
     Indication: IMPLANTATION COMPLICATION
     Route: 048
     Dates: start: 20200511, end: 20200618
  2. TICAGRELOR. [Suspect]
     Active Substance: TICAGRELOR
     Indication: IMPLANTATION COMPLICATION
     Route: 048
     Dates: start: 20200512, end: 20200618

REACTIONS (5)
  - Fatigue [Recovered/Resolved]
  - Dyspepsia [Unknown]
  - Lower gastrointestinal haemorrhage [Unknown]
  - Faeces discoloured [Recovering/Resolving]
  - Dizziness [Recovered/Resolved]

NARRATIVE: CASE EVENT DATE: 20200616
